FAERS Safety Report 4840261-8 (Version None)
Quarter: 2005Q4

REPORT INFORMATION
  Report Type: 
  Country: None (occurrence: None)
  Receive Date: 20051129
  Receipt Date: 20051004
  Transmission Date: 20060501
  Serious: Yes (Hospitalization, Other)
  Sender: FDA-Public Use
  Company Number: US-MERCK-0510USA02435

PATIENT
  Age: 64 Year
  Sex: Male
  Weight: 88 kg

DRUGS (8)
  1. VIOXX [Suspect]
     Indication: ARTHRITIS
     Route: 048
     Dates: start: 19990101, end: 20000601
  2. VIOXX [Suspect]
     Indication: BACK PAIN
     Route: 048
     Dates: start: 19990101, end: 20000601
  3. TENORMIN [Concomitant]
     Route: 065
  4. MEVACOR [Concomitant]
     Route: 065
  5. NIACIN [Concomitant]
     Route: 065
  6. ECOTRIN [Concomitant]
     Route: 065
  7. ASCORBIC ACID [Concomitant]
     Route: 065
  8. VITAMIN E [Concomitant]
     Route: 065

REACTIONS (5)
  - ADVERSE DRUG REACTION [None]
  - CARDIAC FAILURE CONGESTIVE [None]
  - LUNG DISORDER [None]
  - PNEUMONIA PRIMARY ATYPICAL [None]
  - SILENT MYOCARDIAL INFARCTION [None]
